FAERS Safety Report 19150088 (Version 19)
Quarter: 2025Q3

REPORT INFORMATION
  Report Type: Report from Study
  Country: AR (occurrence: AR)
  Receive Date: 20210417
  Receipt Date: 20250728
  Transmission Date: 20251020
  Serious: Yes (Hospitalization, Other)
  Sender: NOVARTIS
  Company Number: NVSC2021AR082039

PATIENT
  Age: 3 Year
  Sex: Male

DRUGS (4)
  1. ILARIS [Suspect]
     Active Substance: CANAKINUMAB
     Indication: Cryopyrin associated periodic syndrome
     Dosage: 150 MG, QMO
     Route: 058
     Dates: start: 20181201
  2. ILARIS [Suspect]
     Active Substance: CANAKINUMAB
     Indication: Chronic infantile neurological cutaneous and articular syndrome
     Dosage: 150 MG, QMO
     Route: 042
     Dates: start: 2018
  3. ILARIS [Suspect]
     Active Substance: CANAKINUMAB
     Indication: Hypergammaglobulinaemia
     Dosage: 120 MG, QMO
     Route: 058
  4. ILARIS [Suspect]
     Active Substance: CANAKINUMAB
     Indication: Mevalonate kinase deficiency
     Route: 065
     Dates: start: 20210201

REACTIONS (31)
  - Limb injury [Unknown]
  - Wound infection [Unknown]
  - Cellulitis [Unknown]
  - Pneumonia [Recovered/Resolved]
  - Pleural effusion [Recovered/Resolved]
  - Condition aggravated [Recovered/Resolved]
  - Cryopyrin associated periodic syndrome [Recovered/Resolved]
  - Pyrexia [Recovered/Resolved]
  - Stomatitis [Recovered/Resolved]
  - Abdominal pain upper [Recovered/Resolved]
  - Vomiting [Recovered/Resolved]
  - Vomiting [Unknown]
  - Chronic infantile neurological cutaneous and articular syndrome [Recovered/Resolved]
  - Condition aggravated [Recovered/Resolved]
  - Pneumonia [Recovered/Resolved]
  - Spleen disorder [Unknown]
  - Diarrhoea [Unknown]
  - Cough [Unknown]
  - Bite [Unknown]
  - Pain in extremity [Unknown]
  - Rash [Unknown]
  - Pyrexia [Recovered/Resolved]
  - Malaise [Unknown]
  - Pain [Unknown]
  - Aphthous ulcer [Unknown]
  - Product availability issue [Unknown]
  - Chills [Unknown]
  - Incorrect route of product administration [Unknown]
  - Tremor [Unknown]
  - Hypergammaglobulinaemia [Unknown]
  - Mevalonate kinase deficiency [Unknown]

NARRATIVE: CASE EVENT DATE: 20200101
